FAERS Safety Report 11490265 (Version 1)
Quarter: 2015Q3

REPORT INFORMATION
  Report Type: Report from Study
  Country: DE (occurrence: DE)
  Receive Date: 20150910
  Receipt Date: 20150910
  Transmission Date: 20151125
  Serious: Yes (Hospitalization, Other)
  Sender: FDA-Public Use
  Company Number: DE-CELGENE-DEU-2015045407

PATIENT
  Sex: Female
  Weight: 58 kg

DRUGS (21)
  1. MYCOPHENOLATMOFETIL [Concomitant]
     Route: 065
     Dates: start: 20080111, end: 20080111
  2. CYCLOSPORINE. [Concomitant]
     Active Substance: CYCLOSPORINE
     Dosage: 2 GRAM
     Route: 065
     Dates: start: 20080105, end: 20080105
  3. MYCOPHENOLATMOFETIL [Concomitant]
     Indication: GRAFT VERSUS HOST DISEASE
     Route: 065
     Dates: start: 20071228, end: 20080110
  4. CYCLOSPORINE. [Concomitant]
     Active Substance: CYCLOSPORINE
     Dosage: 1200 MILLIGRAM
     Route: 065
     Dates: start: 20080106, end: 20080106
  5. ARA-C [Concomitant]
     Active Substance: CYTARABINE
     Indication: PRODUCT USED FOR UNKNOWN INDICATION
     Route: 041
     Dates: start: 20071215, end: 20071218
  6. G-CSF [Concomitant]
     Active Substance: GRANULOCYTE COLONY-STIMULATING FACTOR NOS
     Indication: PRODUCT USED FOR UNKNOWN INDICATION
     Route: 065
     Dates: start: 20071227
  7. CYCLOPHOSPHAMIDE. [Concomitant]
     Active Substance: CYCLOPHOSPHAMIDE
     Indication: PRODUCT USED FOR UNKNOWN INDICATION
     Dosage: 2280 MILLIGRAM/SQ. METER
     Route: 041
     Dates: start: 20071223, end: 20071224
  8. LENOGRASTIM [Concomitant]
     Active Substance: LENOGRASTIM
     Indication: PRODUCT USED FOR UNKNOWN INDICATION
     Dosage: 300 MICROGRAM
     Route: 058
     Dates: start: 20080110
  9. CYCLOSPORINE. [Concomitant]
     Active Substance: CYCLOSPORINE
     Indication: GRAFT VERSUS HOST DISEASE
     Dosage: 1.2 GRAM
     Route: 065
     Dates: start: 20080103, end: 20080104
  10. CYCLOSPORINE. [Concomitant]
     Active Substance: CYCLOSPORINE
     Route: 065
     Dates: start: 20080108, end: 20080108
  11. REVLIMID [Suspect]
     Active Substance: LENALIDOMIDE
     Route: 048
     Dates: start: 20071207
  12. FLUDARABINE [Concomitant]
     Active Substance: FLUDARABINE PHOSPHATE
     Indication: PRODUCT USED FOR UNKNOWN INDICATION
     Dosage: 30 MILLIGRAM/SQ. METER
     Route: 041
     Dates: start: 20071215, end: 20071218
  13. MYCOPHENOLATMOFETIL [Concomitant]
     Route: 065
     Dates: start: 20071227, end: 20071227
  14. CYCLOSPORINE. [Concomitant]
     Active Substance: CYCLOSPORINE
     Dosage: 1500 MILLIGRAM
     Route: 065
     Dates: start: 20071227, end: 20080102
  15. CYCLOSPORINE. [Concomitant]
     Active Substance: CYCLOSPORINE
     Dosage: 100 MILLIGRAM
     Route: 065
     Dates: start: 20080113, end: 20080114
  16. CYCLOSPORINE. [Concomitant]
     Active Substance: CYCLOSPORINE
     Dosage: 3000 MILLIGRAM
     Route: 065
     Dates: start: 20080109, end: 20080109
  17. CYCLOSPORINE. [Concomitant]
     Active Substance: CYCLOSPORINE
     Route: 065
     Dates: start: 20080115, end: 20080115
  18. REVLIMID [Suspect]
     Active Substance: LENALIDOMIDE
     Indication: ACUTE MYELOID LEUKAEMIA
     Route: 048
     Dates: start: 20071130
  19. AMSACRINE [Concomitant]
     Active Substance: AMSACRINE
     Indication: PRODUCT USED FOR UNKNOWN INDICATION
     Dosage: 100 MILLIGRAM/SQ. METER
     Route: 041
     Dates: start: 20071215, end: 20071218
  20. CYCLOSPORINE. [Concomitant]
     Active Substance: CYCLOSPORINE
     Dosage: 960 MILLIGRAM
     Route: 065
     Dates: start: 20080107, end: 20080107
  21. CYCLOSPORINE. [Concomitant]
     Active Substance: CYCLOSPORINE
     Route: 065
     Dates: start: 20080111, end: 20080112

REACTIONS (3)
  - Febrile neutropenia [Recovered/Resolved]
  - Jugular vein thrombosis [Unknown]
  - Neutropenic colitis [Recovered/Resolved]
